FAERS Safety Report 20705095 (Version 5)
Quarter: 2025Q1

REPORT INFORMATION
  Report Type: Spontaneous
  Country: JP (occurrence: JP)
  Receive Date: 20220413
  Receipt Date: 20250331
  Transmission Date: 20250409
  Serious: Yes (Life-Threatening, Hospitalization, Other)
  Sender: PFIZER
  Company Number: JP-PFIZER INC-202200529357

PATIENT
  Age: 11 Year
  Sex: Male
  Weight: 22.9 kg

DRUGS (29)
  1. DEXMEDETOMIDINE HYDROCHLORIDE [Suspect]
     Active Substance: DEXMEDETOMIDINE HYDROCHLORIDE
     Indication: Sedation
  2. DEXMEDETOMIDINE HYDROCHLORIDE [Suspect]
     Active Substance: DEXMEDETOMIDINE HYDROCHLORIDE
     Indication: Intensive care
  3. DEXMEDETOMIDINE HYDROCHLORIDE [Suspect]
     Active Substance: DEXMEDETOMIDINE HYDROCHLORIDE
  4. DEXMEDETOMIDINE HYDROCHLORIDE [Suspect]
     Active Substance: DEXMEDETOMIDINE HYDROCHLORIDE
  5. DEXMEDETOMIDINE HYDROCHLORIDE [Suspect]
     Active Substance: DEXMEDETOMIDINE HYDROCHLORIDE
  6. MIDAZOLAM [Suspect]
     Active Substance: MIDAZOLAM
     Indication: Sedation
  7. MIDAZOLAM [Suspect]
     Active Substance: MIDAZOLAM
  8. MIDAZOLAM [Suspect]
     Active Substance: MIDAZOLAM
  9. MIDAZOLAM [Suspect]
     Active Substance: MIDAZOLAM
  10. MIDAZOLAM [Suspect]
     Active Substance: MIDAZOLAM
  11. MIDAZOLAM [Suspect]
     Active Substance: MIDAZOLAM
  12. FENTANYL [Suspect]
     Active Substance: FENTANYL
     Indication: Sedation
  13. FENTANYL [Suspect]
     Active Substance: FENTANYL
  14. FENTANYL [Suspect]
     Active Substance: FENTANYL
  15. FENTANYL [Suspect]
     Active Substance: FENTANYL
  16. FENTANYL [Suspect]
     Active Substance: FENTANYL
  17. CHLORAL HYDRATE [Suspect]
     Active Substance: CHLORAL HYDRATE
     Indication: Sedation
  18. KETAMINE [Suspect]
     Active Substance: KETAMINE
     Indication: Sedation
  19. KETAMINE [Suspect]
     Active Substance: KETAMINE
  20. KETAMINE [Suspect]
     Active Substance: KETAMINE
  21. KETAMINE [Suspect]
     Active Substance: KETAMINE
  22. MORPHINE [Suspect]
     Active Substance: MORPHINE
     Indication: Sedation
  23. DIAZEPAM [Suspect]
     Active Substance: DIAZEPAM
     Indication: Sedation
     Route: 048
  24. DIAZEPAM [Suspect]
     Active Substance: DIAZEPAM
     Dosage: 8 MG/DAY
     Route: 048
  25. THIOPENTAL [Suspect]
     Active Substance: THIOPENTAL
     Indication: Sedation
  26. TRICLOFOS SODIUM [Suspect]
     Active Substance: TRICLOFOS SODIUM
     Route: 048
  27. CLONIDINE [Concomitant]
     Active Substance: CLONIDINE
     Route: 048
  28. CLONIDINE [Concomitant]
     Active Substance: CLONIDINE
     Route: 048
  29. ROCURONIUM [Concomitant]
     Active Substance: ROCURONIUM BROMIDE

REACTIONS (3)
  - Negative pressure pulmonary oedema [Recovered/Resolved]
  - Drug withdrawal syndrome [Recovered/Resolved]
  - Mechanical ventilation complication [Recovered/Resolved]
